FAERS Safety Report 5171639-3 (Version None)
Quarter: 2006Q4

REPORT INFORMATION
  Report Type: 
  Country: None (occurrence: None)
  Receive Date: 20061213
  Receipt Date: 20061207
  Transmission Date: 20070319
  Serious: Yes (Death)
  Sender: FDA-Public Use
  Company Number: US-BRISTOL-MYERS SQUIBB COMPANY-13605548

PATIENT
  Age: 36 Year
  Sex: Female
  Weight: 89 kg

DRUGS (12)
  1. TRAZODONE HCL [Suspect]
     Indication: BIPOLAR DISORDER
     Dates: start: 20060413
  2. DIAZEPAM [Concomitant]
  3. GABAPENTIN [Concomitant]
  4. SEROQUEL [Concomitant]
  5. ZYRTEC [Concomitant]
  6. LEVOXYL [Concomitant]
  7. METFORMIN [Concomitant]
  8. SINGULAIR [Concomitant]
  9. LIDODERM PATCH [Concomitant]
  10. METHADONE HCL [Concomitant]
  11. IMIPRAMINE [Concomitant]
  12. BUPROPION HCL [Concomitant]

REACTIONS (3)
  - DRUG INTERACTION [None]
  - HEPATIC STEATOSIS [None]
  - OVERDOSE [None]
